FAERS Safety Report 4339292-6 (Version None)
Quarter: 2004Q2

REPORT INFORMATION
  Report Type: 
  Country: None (occurrence: None)
  Receive Date: 20040412
  Receipt Date: 20040326
  Transmission Date: 20050107
  Serious: Yes (Hospitalization)
  Sender: FDA-Public Use
  Company Number: 194956

PATIENT
  Sex: Female

DRUGS (3)
  1. AVONEX [Suspect]
     Indication: MULTIPLE SCLEROSIS
  2. DEPRESSION PILLS [Concomitant]
  3. NERVE PILLS [Concomitant]

REACTIONS (4)
  - CHOLELITHIASIS [None]
  - MOOD SWINGS [None]
  - OEDEMA PERIPHERAL [None]
  - THROMBOSIS [None]
